FAERS Safety Report 5282283-1 (Version None)
Quarter: 2007Q1

REPORT INFORMATION
  Report Type: 
  Country: None (occurrence: None)
  Receive Date: 20070331
  Receipt Date: 20070319
  Transmission Date: 20070707
  Serious: Yes (Other)
  Sender: FDA-Public Use
  Company Number: GB-PFIZER INC-2007023354

PATIENT
  Age: 49 Year
  Sex: Female
  Weight: 87 kg

DRUGS (6)
  1. GABAPENTIN [Suspect]
     Indication: NEURALGIA
     Route: 048
     Dates: start: 20070207, end: 20070217
  2. ACETYLSALICYLIC ACID SRT [Concomitant]
  3. CELECOXIB [Concomitant]
  4. DIHYDROCODEINE BITARTRATE INJ [Concomitant]
     Route: 048
  5. ACETAMINOPHEN [Concomitant]
     Route: 048
  6. RABEPRAZOLE SODIUM [Concomitant]

REACTIONS (3)
  - MIGRAINE [None]
  - OCULAR HYPERAEMIA [None]
  - PARAESTHESIA [None]
